FAERS Safety Report 12667756 (Version 1)
Quarter: 2016Q3

REPORT INFORMATION
  Report Type: Spontaneous
  Country: US (occurrence: US)
  Receive Date: 20160819
  Receipt Date: 20160819
  Transmission Date: 20161109
  Serious: Yes (Other)
  Sender: FDA-Public Use
  Company Number: US-BELCHER PHARMACEUTICALS, LLC-2016VTS00056

PATIENT
  Age: 66 Year
  Sex: Female
  Weight: 81.63 kg

DRUGS (2)
  1. VAGIFEM [Concomitant]
     Active Substance: ESTRADIOL
     Dosage: UNK
  2. HYOSCYAMINE SULFATE SL [Suspect]
     Active Substance: HYOSCYAMINE SULFATE
     Dosage: 1 TABLETS, UP TO 3X/DAY
     Route: 048
     Dates: start: 20160729, end: 2016

REACTIONS (3)
  - Product taste abnormal [None]
  - Neurological symptom [Recovered/Resolved]
  - Hallucination [Recovered/Resolved]

NARRATIVE: CASE EVENT DATE: 2016
